FAERS Safety Report 14304728 (Version 1)
Quarter: 2017Q4

REPORT INFORMATION
  Report Type: Spontaneous
  Country: JP (occurrence: JP)
  Receive Date: 20171219
  Receipt Date: 20171219
  Transmission Date: 20180321
  Serious: Yes (Hospitalization)
  Sender: FDA-Public Use
  Company Number: JP-OTSUKA-003493

PATIENT
  Age: 59 Year
  Sex: Male

DRUGS (21)
  1. ABILIFY [Suspect]
     Active Substance: ARIPIPRAZOLE
     Dosage: 3 MG, TID
     Route: 048
     Dates: start: 20080707, end: 20080708
  2. TASMOLIN [Concomitant]
     Active Substance: BIPERIDEN
     Indication: PARKINSONISM
     Dosage: 1 MG, TID
     Route: 048
     Dates: start: 20080318
  3. TEGRETOL [Concomitant]
     Active Substance: CARBAMAZEPINE
     Indication: BIPOLAR I DISORDER
     Dosage: 200 MG, QID
     Route: 048
     Dates: start: 20080318
  4. LIMAS [Concomitant]
     Active Substance: LITHIUM CARBONATE
     Indication: LOGORRHOEA
  5. BENZALIN [Concomitant]
     Active Substance: NITRAZEPAM
     Indication: INSOMNIA
     Dosage: 5 MG, QD
     Dates: start: 20080318
  6. LENDORMIN [Concomitant]
     Active Substance: BROTIZOLAM
     Indication: INSOMNIA
     Dosage: 0.25 MG, QD
     Route: 048
     Dates: start: 20080318
  7. LIMAS [Concomitant]
     Active Substance: LITHIUM CARBONATE
     Indication: INCOHERENT
  8. SEDIEL [Concomitant]
     Active Substance: TANDOSPIRONE
     Dosage: 20 MG, TID
     Route: 048
     Dates: start: 20080630, end: 20080708
  9. TEGRETOL [Concomitant]
     Active Substance: CARBAMAZEPINE
     Dosage: 100 MG, QD
     Route: 048
     Dates: start: 20080318
  10. LIMAS [Concomitant]
     Active Substance: LITHIUM CARBONATE
     Indication: AGITATION
     Dosage: 100 MG, TID
     Route: 048
     Dates: start: 20080717
  11. ABILIFY [Suspect]
     Active Substance: ARIPIPRAZOLE
     Dosage: 3 MG, QD
     Route: 048
     Dates: start: 20080709, end: 20080712
  12. SEDIEL [Concomitant]
     Active Substance: TANDOSPIRONE
     Indication: DEPRESSION
     Dosage: 10 MG, TID
     Route: 048
     Dates: start: 20080520, end: 20080629
  13. VEGETAMIN-A [Concomitant]
     Active Substance: CHLORPROMAZINE HYDROCHLORIDE\PHENOBARBITAL\PROMETHAZINE
     Indication: INSOMNIA
     Dosage: 1 DF, QD
     Route: 048
     Dates: start: 20080318
  14. LIMAS [Concomitant]
     Active Substance: LITHIUM CARBONATE
     Indication: BIPOLAR I DISORDER
     Dosage: 200 MG, TID
     Route: 048
     Dates: start: 20080318, end: 20080716
  15. CARBAMAZEPINE. [Concomitant]
     Active Substance: CARBAMAZEPINE
     Dosage: TABLET.
     Dates: start: 20080318
  16. DEPAS [Concomitant]
     Active Substance: ETIZOLAM
     Indication: DEPRESSION
     Dosage: 1 MG, TID
     Route: 048
     Dates: start: 20080318, end: 20080712
  17. RIVOTRIL [Concomitant]
     Active Substance: CLONAZEPAM
     Indication: DEPRESSION
     Dosage: 0.5 MG, QD
     Route: 048
     Dates: start: 20080619, end: 20080712
  18. LIMAS [Concomitant]
     Active Substance: LITHIUM CARBONATE
     Indication: ANGER
  19. ABILIFY [Suspect]
     Active Substance: ARIPIPRAZOLE
     Indication: SCHIZOPHRENIA
     Dosage: 3 MG, QD
     Route: 048
     Dates: start: 20080702, end: 20080706
  20. SEDIEL [Concomitant]
     Active Substance: TANDOSPIRONE
     Dosage: 10 MG, TID
     Route: 048
     Dates: start: 20080709, end: 20080712
  21. CLONAZEPAM. [Concomitant]
     Active Substance: CLONAZEPAM
     Dosage: .5 MG, UNK
     Dates: start: 20080619, end: 20080712

REACTIONS (1)
  - Psychomotor hyperactivity [Recovering/Resolving]

NARRATIVE: CASE EVENT DATE: 20080708
